FAERS Safety Report 9127998 (Version 1)
Quarter: 2013Q1

REPORT INFORMATION
  Report Type: Spontaneous
  Country: DE (occurrence: DE)
  Receive Date: 20130228
  Receipt Date: 20130228
  Transmission Date: 20140127
  Serious: Yes (Congenital Anomaly)
  Sender: FDA-Public Use
  Company Number: DE-PFIZER INC-2013067335

PATIENT
  Sex: Female
  Weight: 1.89 kg

DRUGS (13)
  1. VENLAFAXINE HYDROCHLORIDE [Suspect]
     Indication: DEPRESSION
     Dosage: 300 MG DAILY
     Route: 064
     Dates: start: 20111012
  2. VENLAFAXINE HYDROCHLORIDE [Suspect]
     Dosage: 150 MG DAILY
     Route: 064
  3. VENLAFAXINE HYDROCHLORIDE [Suspect]
     Dosage: 75 MG DAILY
     Route: 064
  4. VENLAFAXINE HYDROCHLORIDE [Suspect]
     Dosage: 37.5 MG DAILY
     Route: 064
     Dates: end: 20120606
  5. METFORMIN HCL [Suspect]
     Indication: POLYCYSTIC OVARIES
     Dosage: 850 MG, 2X/DAY
     Route: 064
  6. MELPERONE [Suspect]
     Indication: DEPRESSION
     Dosage: 200 MG DAILY
     Route: 064
     Dates: start: 20111012
  7. MELPERONE [Suspect]
     Dosage: 100 MG DAILY
     Route: 064
  8. MELPERONE [Suspect]
     Dosage: 50 MG DAILY
     Route: 064
  9. MELPERONE [Suspect]
     Dosage: 25 MG DAILY
     Route: 064
     Dates: end: 20120606
  10. FRAGMIN P FORTE [Concomitant]
     Indication: FACTOR V LEIDEN MUTATION
     Dosage: 5000 IU, 1X/DAY
     Route: 064
  11. KADEFUNGIN [Concomitant]
     Indication: VULVOVAGINAL MYCOTIC INFECTION
     Dosage: 3 COURSES IN MONTH 3, 5 AND 8
     Route: 064
  12. KADEFUNGIN [Concomitant]
     Indication: VULVOVAGINAL MYCOTIC INFECTION
  13. FEMIBION [Concomitant]
     Indication: PROPHYLAXIS OF NEURAL TUBE DEFECT
     Dosage: 0.8 MG DAILY
     Route: 064

REACTIONS (10)
  - Maternal exposure during pregnancy [Not Recovered/Not Resolved]
  - Fallot^s tetralogy [Recovered/Resolved with Sequelae]
  - Congenital uterine anomaly [Not Recovered/Not Resolved]
  - Anal atresia [Not Recovered/Not Resolved]
  - Congenital absence of bile ducts [Not Recovered/Not Resolved]
  - Persistent cloaca [Not Recovered/Not Resolved]
  - Spine malformation [Not Recovered/Not Resolved]
  - Atrial septal defect [Recovered/Resolved with Sequelae]
  - Right aortic arch [Recovered/Resolved with Sequelae]
  - Persistent left superior vena cava [Recovered/Resolved with Sequelae]
